FAERS Safety Report 19210458 (Version 1)
Quarter: 2021Q2

REPORT INFORMATION
  Report Type: Spontaneous
  Country: US (occurrence: US)
  Receive Date: 20210504
  Receipt Date: 20210504
  Transmission Date: 20210717
  Serious: No
  Sender: FDA-Public Use
  Company Number: US-TEVA-2021-US-1905240

PATIENT
  Age: 26 Year
  Sex: Female

DRUGS (1)
  1. NAPROXEN. [Suspect]
     Active Substance: NAPROXEN
     Route: 065

REACTIONS (3)
  - Hypersomnia [Unknown]
  - Fatigue [Unknown]
  - Dysmenorrhoea [Unknown]
